FAERS Safety Report 10960866 (Version 1)
Quarter: 2015Q1

REPORT INFORMATION
  Report Type: Spontaneous
  Country: MY (occurrence: MY)
  Receive Date: 20150327
  Receipt Date: 20150327
  Transmission Date: 20150721
  Serious: Yes (Other)
  Sender: FDA-Public Use
  Company Number: MY-BAUSCH-BL-2015-010117

PATIENT
  Age: 31 Year
  Sex: Male

DRUGS (1)
  1. DILTIAZEM [Suspect]
     Active Substance: DILTIAZEM
     Indication: PROTEINURIA
     Route: 065

REACTIONS (2)
  - Hepatic fibrosis [Unknown]
  - Cholestasis [Recovering/Resolving]
